FAERS Safety Report 11410685 (Version 1)
Quarter: 2015Q3

REPORT INFORMATION
  Report Type: Spontaneous
  Country: US (occurrence: US)
  Receive Date: 20150824
  Receipt Date: 20150824
  Transmission Date: 20151125
  Serious: Yes (Hospitalization, Other)
  Sender: FDA-Public Use
  Company Number: US-ELI_LILLY_AND_COMPANY-US201507007869

PATIENT
  Sex: Male
  Weight: 100.23 kg

DRUGS (9)
  1. HUMALOG MIX75/25 [Suspect]
     Active Substance: INSULIN LISPRO
     Indication: PRODUCT USED FOR UNKNOWN INDICATION
     Route: 065
  2. SYNTHROID [Concomitant]
     Active Substance: LEVOTHYROXINE SODIUM
     Dosage: 0.25 DF, BID
  3. GLIPIZIDE. [Concomitant]
     Active Substance: GLIPIZIDE
     Dosage: UNK, QD
  4. HUMALOG MIX75/25 [Suspect]
     Active Substance: INSULIN LISPRO
     Route: 065
  5. COZAAR [Concomitant]
     Active Substance: LOSARTAN POTASSIUM
     Dosage: 50 DF, QD
  6. COREG [Concomitant]
     Active Substance: CARVEDILOL
     Dosage: 25 DF, BID
  7. FENOBIBRATE [Concomitant]
     Dosage: 1600 DF, QD
  8. ZOCOR [Concomitant]
     Active Substance: SIMVASTATIN
     Dosage: 20 DF, UNK
  9. METFORMIN [Concomitant]
     Active Substance: METFORMIN HYDROCHLORIDE
     Dosage: 500 MG, BID

REACTIONS (4)
  - Gangrene [Recovering/Resolving]
  - Cellulitis [Unknown]
  - Osteomyelitis [Unknown]
  - Peptic ulcer [Unknown]
